FAERS Safety Report 5024036-5 (Version None)
Quarter: 2006Q2

REPORT INFORMATION
  Report Type: 
  Country: None (occurrence: None)
  Receive Date: 20060606
  Receipt Date: 20060530
  Transmission Date: 20061013
  Serious: Yes (Hospitalization, Other)
  Sender: FDA-Public Use
  Company Number: HQWYE165204MAY06

PATIENT
  Age: 51 Year
  Sex: Female
  Weight: 44.04 kg

DRUGS (10)
  1. TYGACIL [Suspect]
     Indication: ABDOMINAL WALL INFECTION
     Dosage: 50 MG 1X PER 12 HR, INTRAVENOUS; 100 MG LOADING DOSE THEN 50 MG EVERY 12 HOURS, INTRAVENOUS
     Route: 042
     Dates: start: 20060215, end: 20060218
  2. TYGACIL [Suspect]
     Indication: ENTEROCOCCAL INFECTION
     Dosage: 50 MG 1X PER 12 HR, INTRAVENOUS; 100 MG LOADING DOSE THEN 50 MG EVERY 12 HOURS, INTRAVENOUS
     Route: 042
     Dates: start: 20060215, end: 20060218
  3. TYGACIL [Suspect]
     Indication: ESCHERICHIA INFECTION
     Dosage: 50 MG 1X PER 12 HR, INTRAVENOUS; 100 MG LOADING DOSE THEN 50 MG EVERY 12 HOURS, INTRAVENOUS
     Route: 042
     Dates: start: 20060215, end: 20060218
  4. TYGACIL [Suspect]
     Indication: KLEBSIELLA INFECTION
     Dosage: 50 MG 1X PER 12 HR, INTRAVENOUS; 100 MG LOADING DOSE THEN 50 MG EVERY 12 HOURS, INTRAVENOUS
     Route: 042
     Dates: start: 20060215, end: 20060218
  5. TYGACIL [Suspect]
     Indication: ABDOMINAL WALL INFECTION
     Dosage: 50 MG 1X PER 12 HR, INTRAVENOUS; 100 MG LOADING DOSE THEN 50 MG EVERY 12 HOURS, INTRAVENOUS
     Route: 042
     Dates: start: 20060221, end: 20060227
  6. TYGACIL [Suspect]
     Indication: ENTEROCOCCAL INFECTION
     Dosage: 50 MG 1X PER 12 HR, INTRAVENOUS; 100 MG LOADING DOSE THEN 50 MG EVERY 12 HOURS, INTRAVENOUS
     Route: 042
     Dates: start: 20060221, end: 20060227
  7. TYGACIL [Suspect]
     Indication: ESCHERICHIA INFECTION
     Dosage: 50 MG 1X PER 12 HR, INTRAVENOUS; 100 MG LOADING DOSE THEN 50 MG EVERY 12 HOURS, INTRAVENOUS
     Route: 042
     Dates: start: 20060221, end: 20060227
  8. TYGACIL [Suspect]
     Indication: KLEBSIELLA INFECTION
     Dosage: 50 MG 1X PER 12 HR, INTRAVENOUS; 100 MG LOADING DOSE THEN 50 MG EVERY 12 HOURS, INTRAVENOUS
     Route: 042
     Dates: start: 20060221, end: 20060227
  9. DIFLUCAN [Concomitant]
  10. CLINDAMYCIN [Concomitant]

REACTIONS (1)
  - KLEBSIELLA SEPSIS [None]
